FAERS Safety Report 8996839 (Version 1)
Quarter: 2012Q4

REPORT INFORMATION
  Report Type: Spontaneous
  Country: US (occurrence: None)
  Receive Date: 20121228
  Receipt Date: 20121228
  Transmission Date: 20130627
  Serious: Yes (Other)
  Sender: FDA-Public Use
  Company Number: None

PATIENT
  Age: 42 Year
  Sex: Female
  Weight: 160.57 kg

DRUGS (1)
  1. CRESTOR [Suspect]
     Indication: BLOOD CHOLESTEROL ABNORMAL
     Dosage: 1 tablet @ bedtime  5mg
     Dates: start: 20121023, end: 20121101

REACTIONS (5)
  - Pain in extremity [None]
  - Arthralgia [None]
  - Myalgia [None]
  - Gait disturbance [None]
  - Movement disorder [None]
